FAERS Safety Report 8195815-0 (Version None)
Quarter: 2012Q1

REPORT INFORMATION
  Report Type: 
  Country: None (occurrence: None)
  Receive Date: 20120308
  Receipt Date: 20120225
  Transmission Date: 20120608
  Serious: Yes (Other)
  Sender: FDA-Public Use
  Company Number: US-PFIZER INC-2012034843

PATIENT
  Sex: Female
  Weight: 63 kg

DRUGS (5)
  1. AMBIEN [Concomitant]
     Indication: INSOMNIA
     Dosage: 10 MG, AS NEEDED
     Route: 048
     Dates: start: 20080101, end: 20110503
  2. NAPROXEN (ALEVE) [Concomitant]
     Indication: BACK PAIN
     Dosage: 440 MG, AS NEEDED
     Route: 048
     Dates: start: 20100101, end: 20110401
  3. VARENICLINE TARTRATE [Suspect]
     Indication: SMOKING CESSATION THERAPY
     Dosage: UNK
     Route: 048
     Dates: start: 20110322, end: 20110502
  4. CYMBALTA [Concomitant]
     Indication: MAJOR DEPRESSION
     Dosage: 60 MG, 1X/DAY
     Route: 048
     Dates: start: 20100101, end: 20110503
  5. ATIVAN [Concomitant]
     Indication: ANXIETY
     Dosage: 1 MG, AS NEEDED
     Route: 048
     Dates: start: 20030101, end: 20110503

REACTIONS (5)
  - AUTOIMMUNE HEPATITIS [None]
  - WEIGHT DECREASED [None]
  - DEPRESSION [None]
  - ANXIETY [None]
  - CONDITION AGGRAVATED [None]
